FAERS Safety Report 8548242 (Version 4)
Quarter: 2012Q4

REPORT INFORMATION
  Report Type: 
  Country: US (occurrence: US)
  Receive Date: 20120507
  Receipt Date: 20120903
  Transmission Date: 20130627
  Serious: Yes (Hospitalization, Other)
  Sender: FDA-Public Use
  Company Number: US-PFIZER INC-2012106651

PATIENT
  Age: 68 Year
  Sex: Male

DRUGS (2)
  1. VFEND [Suspect]
     Indication: LUNG TRANSPLANT
     Dosage: 200 mg, 2x/day
     Route: 048
     Dates: start: 20120213, end: 20120423
  2. VFEND [Suspect]
     Indication: ASPERGILLOSIS

REACTIONS (5)
  - Hepatic enzyme increased [Recovered/Resolved]
  - Dizziness [Unknown]
  - Blood creatinine increased [Unknown]
  - Pneumonia [Unknown]
  - Abdominal discomfort [Unknown]
